FAERS Safety Report 8608944-1 (Version None)
Quarter: 2012Q3

REPORT INFORMATION
  Report Type: 
  Country: None (occurrence: None)
  Receive Date: 20120821
  Receipt Date: 20120806
  Transmission Date: 20120928
  Serious: Yes (Other)
  Sender: FDA-Public Use
  Company Number: AU-JNJFOC-20120808359

PATIENT
  Sex: Female

DRUGS (1)
  1. RISPERDAL CONSTA [Suspect]
     Indication: PRODUCT USED FOR UNKNOWN INDICATION
     Dosage: 2/52
     Route: 030
     Dates: start: 20120616

REACTIONS (10)
  - COORDINATION ABNORMAL [None]
  - HEADACHE [None]
  - HYPERSENSITIVITY [None]
  - SWELLING FACE [None]
  - VISION BLURRED [None]
  - CHEST PAIN [None]
  - DRUG PRESCRIBING ERROR [None]
  - DYSPNOEA [None]
  - INJURY [None]
  - MALAISE [None]
